FAERS Safety Report 21617459 (Version 1)
Quarter: 2022Q4

REPORT INFORMATION
  Report Type: Spontaneous
  Country: GB (occurrence: GB)
  Receive Date: 20221119
  Receipt Date: 20221119
  Transmission Date: 20230112
  Serious: Yes (Hospitalization)
  Sender: FDA-Public Use
  Company Number: None

PATIENT
  Sex: Male

DRUGS (13)
  1. CARBOPLATIN [Suspect]
     Active Substance: CARBOPLATIN
     Indication: Product used for unknown indication
     Dosage: LAST HAD 13/4/22
     Route: 065
  2. PEMETREXED [Suspect]
     Active Substance: PEMETREXED
     Indication: Product used for unknown indication
     Dosage: LAST HAD 13/4/22
     Route: 065
  3. HYDROXOCOBALAMIN [Suspect]
     Active Substance: HYDROXOCOBALAMIN
     Indication: Product used for unknown indication
     Dosage: HYDROXOCOBALAMIN 1MG IM, 24/02/2022 HYDROXOCOBALAMIN 1 MG/ML INJECTION TO INJECT INTRAMUSCULARY AS D
     Route: 030
  4. BENZYDAMINE [Concomitant]
     Active Substance: BENZYDAMINE
     Indication: Product used for unknown indication
     Dosage: 60 ML DAILY; BENZYDAMINE 0.15% MOUTHWASH SUGAR FREE RINSE OR GARGLE USING 15 ML FOUR TIMES A DAY  PR
  5. DALTEPARIN [Concomitant]
     Active Substance: DALTEPARIN
     Indication: Product used for unknown indication
     Dosage: 07-APR-2022 DALTEPARIN SODIUM 15,000 UNITS OD
  6. DEXAMETHASONE [Concomitant]
     Active Substance: DEXAMETHASONE
     Indication: Product used for unknown indication
     Dates: start: 20221108
  7. DEXAMETHASONE [Concomitant]
     Active Substance: DEXAMETHASONE
     Dosage: 4 DOSAGE FORMS DAILY; 24/02/2022 DEXAMETHASONE 2 MG TABLETS. TAKE TWO TABLETS TWICE A DAY FOR 3 DAYS
  8. DEXAMETHASONE [Concomitant]
     Active Substance: DEXAMETHASONE
     Dosage: DEXAMETHASONE 4MG PO
     Route: 048
  9. DOCUSATE [Concomitant]
     Active Substance: DOCUSATE
     Indication: Constipation
     Dosage: DOCUSATE 100MG CAPSULES ONE OR TWO TO BE TAKEN TWICE A DAY WHEN REQUIRED FOR CONSTIPATION
  10. DOMPERIDONE [Concomitant]
     Active Substance: DOMPERIDONE
     Indication: Product used for unknown indication
     Dosage: DOMPERIDONE 10MG PO
     Route: 048
  11. ONDANSETRON [Concomitant]
     Active Substance: ONDANSETRON
     Indication: Product used for unknown indication
     Dosage: ONDANSETRON 16MG PO
     Route: 048
  12. PEMBROLIZUMAB [Concomitant]
     Active Substance: PEMBROLIZUMAB
     Indication: Product used for unknown indication
     Dosage: LAST HAD 13/4/22
  13. SILDENAFIL [Concomitant]
     Active Substance: SILDENAFIL
     Indication: Product used for unknown indication
     Dosage: 11-NOV-2021 : SILDENAFIL 100MG TABLETS 1/2 HALF TABLET TO ONE TO BE TAKEN AS DIRECTED

REACTIONS (1)
  - Neutropenic sepsis [Recovered/Resolved]
